FAERS Safety Report 6105915-4 (Version None)
Quarter: 2009Q1

REPORT INFORMATION
  Report Type: 
  Country: None (occurrence: None)
  Receive Date: 20090306
  Receipt Date: 20090306
  Transmission Date: 20090719
  Serious: Yes (Life-Threatening, Other)
  Sender: FDA-Public Use
  Company Number: None

PATIENT
  Sex: Female
  Weight: 86.1834 kg

DRUGS (1)
  1. ERYTHROMYCIN 250 MG FILM TAB ABB 1 TAB 3 TIMES A DAY [Suspect]
     Indication: WISDOM TEETH REMOVAL
     Dosage: #4826
     Dates: start: 20090205, end: 20090207

REACTIONS (10)
  - ANOREXIA [None]
  - DIZZINESS [None]
  - DYSPNOEA [None]
  - FATIGUE [None]
  - PHARYNGEAL OEDEMA [None]
  - RASH [None]
  - STOMATITIS [None]
  - SWOLLEN TONGUE [None]
  - THROAT IRRITATION [None]
  - TONGUE ULCERATION [None]
